FAERS Safety Report 17430900 (Version 1)
Quarter: 2020Q1

REPORT INFORMATION
  Report Type: Report from Study
  Country: US (occurrence: US)
  Receive Date: 20200218
  Receipt Date: 20200218
  Transmission Date: 20200409
  Serious: No
  Sender: FDA-Public Use
  Company Number: NVSC2020US044696

PATIENT
  Sex: Female

DRUGS (1)
  1. GILENYA [Suspect]
     Active Substance: FINGOLIMOD HYDROCHLORIDE
     Indication: MULTIPLE SCLEROSIS
     Dosage: 0.5 MG (1 DF)
     Route: 048
     Dates: start: 20200121

REACTIONS (4)
  - Cognitive disorder [Unknown]
  - Muscle spasticity [Unknown]
  - Pain [Unknown]
  - Sensory disturbance [Unknown]
